FAERS Safety Report 4977222-4 (Version None)
Quarter: 2006Q2

REPORT INFORMATION
  Report Type: 
  Country: None (occurrence: None)
  Receive Date: 20060419
  Receipt Date: 20050304
  Transmission Date: 20061013
  Serious: Yes (Hospitalization)
  Sender: FDA-Public Use
  Company Number: US-MERCK-0503USA01046

PATIENT
  Age: 60 Year
  Sex: Female
  Weight: 61 kg

DRUGS (9)
  1. VIOXX [Suspect]
     Indication: ARTHRITIS
     Route: 048
     Dates: start: 20030801, end: 20040501
  2. LIPITOR [Concomitant]
     Route: 065
  3. [THERAPY UNSPECIFIED] [Concomitant]
     Route: 065
  4. ASPIRIN [Concomitant]
     Route: 065
  5. PLAVIX [Concomitant]
     Route: 065
  6. GLUCOPHAGE [Concomitant]
     Route: 065
  7. LIPITOR [Concomitant]
     Route: 065
  8. DIOVAN [Concomitant]
     Route: 065
  9. CALCIUM (UNSPECIFIED) [Concomitant]
     Route: 065

REACTIONS (14)
  - ASTHENIA [None]
  - BREAST CYST [None]
  - CEREBRAL ARTERIOSCLEROSIS [None]
  - CEREBRAL ARTERY STENOSIS [None]
  - CEREBRAL INFARCTION [None]
  - CEREBROVASCULAR ACCIDENT [None]
  - DIASTOLIC DYSFUNCTION [None]
  - DIZZINESS [None]
  - HEADACHE [None]
  - INJURY [None]
  - ISCHAEMIA [None]
  - MITRAL VALVE INCOMPETENCE [None]
  - NERVOUS SYSTEM DISORDER [None]
  - TRICUSPID VALVE INCOMPETENCE [None]
